FAERS Safety Report 6200462-3 (Version None)
Quarter: 2009Q2

REPORT INFORMATION
  Report Type: 
  Country: None (occurrence: None)
  Receive Date: 20090522
  Receipt Date: 20090514
  Transmission Date: 20091009
  Serious: Yes (Other)
  Sender: FDA-Public Use
  Company Number: US-AMGEN-QUU341487

PATIENT
  Sex: Male
  Weight: 74.5 kg

DRUGS (10)
  1. ARANESP [Suspect]
     Indication: DIALYSIS
     Route: 058
     Dates: start: 20070307
  2. VALCYTET [Suspect]
  3. COREG [Suspect]
  4. NEORAL [Suspect]
  5. FINASTERIDE [Concomitant]
  6. PREDNISONE [Concomitant]
  7. MIDODRINE HYDROCHLORIDE [Concomitant]
  8. HYDROCODONE [Concomitant]
  9. LIPITOR [Concomitant]
  10. ASPIRIN [Concomitant]

REACTIONS (5)
  - APLASIA PURE RED CELL [None]
  - BRONCHIECTASIS [None]
  - CHOLELITHIASIS [None]
  - EMPHYSEMA [None]
  - RENAL CYST [None]
